FAERS Safety Report 25079053 (Version 1)
Quarter: 2025Q1

REPORT INFORMATION
  Report Type: Spontaneous
  Country: BE (occurrence: BE)
  Receive Date: 20250314
  Receipt Date: 20250314
  Transmission Date: 20250409
  Serious: Yes (Death, Life-Threatening, Hospitalization)
  Sender: MERCK SHARP & DOHME LLC
  Company Number: None

PATIENT
  Age: 74 Year
  Sex: Male
  Weight: 72 kg

DRUGS (12)
  1. KEYTRUDA [Suspect]
     Active Substance: PEMBROLIZUMAB
     Indication: Clear cell renal cell carcinoma
     Route: 042
     Dates: start: 20241202, end: 20241202
  2. OPSUMIT 10 mg [Concomitant]
     Dates: start: 201710
  3. FUROSEMIDE [Concomitant]
     Active Substance: FUROSEMIDE
     Dates: start: 2020
  4. COMBODART 0.5 MG/0.4 MG CAPSULES [Concomitant]
     Dates: start: 2019
  5. ATORVASTATIN [Concomitant]
     Active Substance: ATORVASTATIN
     Dosage: THE EVENING
     Dates: start: 2014
  6. RALINEPAG [Concomitant]
     Active Substance: RALINEPAG
     Dosage: 300 MG 1*/DAY
     Dates: start: 2019
  7. LATANOPROST [Concomitant]
     Active Substance: LATANOPROST
     Dates: start: 2022
  8. ADCIRCA [Concomitant]
     Active Substance: TADALAFIL
     Dates: start: 201710
  9. LORMETAZEPAM 2 mg [Concomitant]
     Dosage: THE EVENING
     Dates: start: 2020
  10. PANTOPRAZOLE SODIUM [Concomitant]
     Active Substance: PANTOPRAZOLE SODIUM
     Dates: start: 2005
  11. LOPERAMIDE [Concomitant]
     Active Substance: LOPERAMIDE
     Dates: start: 2019
  12. METFORMIN [Concomitant]
     Active Substance: METFORMIN HYDROCHLORIDE
     Dates: start: 2011

REACTIONS (7)
  - Fatigue [Fatal]
  - Rash erythematous [Fatal]
  - Acute kidney injury [Fatal]
  - Dyspnoea [Fatal]
  - Toxic skin eruption [Fatal]
  - Rash [Fatal]
  - Epidermal necrosis [Fatal]

NARRATIVE: CASE EVENT DATE: 20241205
